FAERS Safety Report 18569761 (Version 1)
Quarter: 2020Q4

REPORT INFORMATION
  Report Type: Spontaneous
  Country: US (occurrence: US)
  Receive Date: 20201202
  Receipt Date: 20201202
  Transmission Date: 20210114
  Serious: No
  Sender: FDA-Public Use
  Company Number: None

PATIENT
  Age: 64 Year
  Sex: Female
  Weight: 90.9 kg

DRUGS (6)
  1. SERTRALINE HCL 100MG, ORAL [Concomitant]
  2. ALBUTEROL SULFATE 1.25MG/3ML, INHALATION [Concomitant]
  3. CETIRIZINE HCL 10MG, ORAL [Concomitant]
  4. IBRANCE [Suspect]
     Active Substance: PALBOCICLIB
     Indication: BREAST CANCER FEMALE
     Route: 048
     Dates: start: 20201112
  5. ATENOLOL 50MG, ORAL [Concomitant]
  6. HYDROCHLOROTHIAZIDE 25MG, ORAL [Concomitant]

REACTIONS (1)
  - Arthralgia [None]

NARRATIVE: CASE EVENT DATE: 20201202
